FAERS Safety Report 6308720-9 (Version None)
Quarter: 2009Q3

REPORT INFORMATION
  Report Type: 
  Country: None (occurrence: None)
  Receive Date: 20090813
  Receipt Date: 20090807
  Transmission Date: 20100115
  Serious: Yes (Disabling)
  Sender: FDA-Public Use
  Company Number: BR-ABBOTT-09P-020-0564877-00

PATIENT
  Sex: Male
  Weight: 72 kg

DRUGS (8)
  1. RITONAVIR SOFT GELATIN CAPSULES [Suspect]
     Indication: HIV INFECTION
     Route: 048
     Dates: start: 20080617, end: 20090329
  2. TMC114 [Concomitant]
     Indication: HIV INFECTION
     Dates: start: 20080617, end: 20090329
  3. TMC125 [Concomitant]
     Indication: HIV INFECTION
     Dates: start: 20080617, end: 20090329
  4. TENOFOVIR [Concomitant]
     Indication: HIV INFECTION
  5. COMBIVIR [Concomitant]
     Indication: HIV INFECTION
  6. FLUTICASONE PROPIONATE [Concomitant]
     Indication: ASTHMA
     Route: 045
  7. SALMETEROL [Concomitant]
     Indication: ASTHMA
     Dates: start: 20081101, end: 20081201
  8. TIOTROPIUM BROMIDE [Concomitant]
     Indication: ASTHMA
     Dates: end: 20081201

REACTIONS (1)
  - OSTEONECROSIS [None]
